FAERS Safety Report 11753826 (Version 1)
Quarter: 2015Q4

REPORT INFORMATION
  Report Type: Spontaneous
  Country: US (occurrence: None)
  Receive Date: 20151118
  Receipt Date: 20151118
  Transmission Date: 20160304
  Serious: Yes (Hospitalization)
  Sender: FDA-Public Use
  Company Number: None

PATIENT
  Age: 21 Year
  Sex: Female
  Weight: 81.8 kg

DRUGS (1)
  1. ETONOGESTREL [Suspect]
     Active Substance: ETONOGESTREL
     Indication: CONTRACEPTION
     Route: 050
     Dates: start: 20130605

REACTIONS (2)
  - Generalised tonic-clonic seizure [None]
  - Haemorrhage [None]

NARRATIVE: CASE EVENT DATE: 20130905
